FAERS Safety Report 15027779 (Version 1)
Quarter: 2018Q2

REPORT INFORMATION
  Report Type: Spontaneous
  Country: PL (occurrence: PL)
  Receive Date: 20180619
  Receipt Date: 20180619
  Transmission Date: 20180711
  Serious: Yes (Other)
  Sender: FDA-Public Use
  Company Number: PL-TEVA-2018-PL-909453

PATIENT
  Age: 14 Month
  Sex: Female

DRUGS (6)
  1. VALPROIC ACID. [Concomitant]
     Active Substance: VALPROIC ACID
     Indication: EYE DISORDER
  2. VALPROIC ACID. [Concomitant]
     Active Substance: VALPROIC ACID
     Indication: TREMOR
  3. LEVETIRACETAM. [Suspect]
     Active Substance: LEVETIRACETAM
     Indication: EYE DISORDER
  4. VALPROIC ACID. [Concomitant]
     Active Substance: VALPROIC ACID
     Indication: STRABISMUS
     Dosage: 30 MG/KG DAILY;
     Route: 065
  5. LEVETIRACETAM. [Suspect]
     Active Substance: LEVETIRACETAM
     Indication: TREMOR
  6. LEVETIRACETAM. [Suspect]
     Active Substance: LEVETIRACETAM
     Indication: STRABISMUS
     Dosage: 30 MG/KG DAILY;
     Route: 065

REACTIONS (5)
  - Strabismus [Recovered/Resolved]
  - Condition aggravated [Recovered/Resolved]
  - Tremor [Recovered/Resolved]
  - Infantile spasms [Recovered/Resolved]
  - Eye disorder [Recovered/Resolved]
